FAERS Safety Report 6985447-1 (Version None)
Quarter: 2010Q3

REPORT INFORMATION
  Report Type: 
  Country: None (occurrence: None)
  Receive Date: 20100915
  Receipt Date: 20100910
  Transmission Date: 20110219
  Serious: Yes (Death, Hospitalization)
  Sender: FDA-Public Use
  Company Number: A0869487A

PATIENT
  Age: 64 Year
  Sex: Female

DRUGS (9)
  1. ZOFRAN [Suspect]
     Indication: PROPHYLAXIS OF NAUSEA AND VOMITING
     Route: 048
  2. PAIN MEDICATION [Concomitant]
  3. CREON [Concomitant]
  4. MORPHINE SULFATE [Concomitant]
     Dosage: 30MG TWICE PER DAY
  5. PERCOCET [Concomitant]
  6. KLONOPIN [Concomitant]
     Dosage: .5MG PER DAY
  7. NOVOLIN 70/30 [Concomitant]
     Dosage: 20UNIT TWICE PER DAY
  8. PROMETHAZINE [Concomitant]
     Dosage: 25MG AS REQUIRED
  9. LORAZEPAM [Concomitant]
     Dosage: 1MG AS REQUIRED

REACTIONS (1)
  - PANCREATIC CARCINOMA [None]
